FAERS Safety Report 5745069-7 (Version None)
Quarter: 2008Q2

REPORT INFORMATION
  Report Type: 
  Country: None (occurrence: None)
  Receive Date: 20080521
  Receipt Date: 20080512
  Transmission Date: 20081010
  Serious: Yes (Other)
  Sender: FDA-Public Use
  Company Number: US-ROCHE-563764

PATIENT
  Sex: Male
  Weight: 68.9 kg

DRUGS (2)
  1. PEG-INTERFERON A-2A (RO 25-8310) [Suspect]
     Indication: HEPATITIS C
     Dosage: PATIENT ON PEGASYS PRE-FILLED SYRINGE (PFS)
     Route: 065
     Dates: start: 20070801
  2. RIBAVIRIN [Suspect]
     Indication: HEPATITIS C
     Dosage: IN DIVIDED DOSES
     Route: 065
     Dates: start: 20070801

REACTIONS (3)
  - LEUKAEMIA [None]
  - NEUTROPENIA [None]
  - PANCYTOPENIA [None]
